FAERS Safety Report 7792737-1 (Version None)
Quarter: 2011Q4

REPORT INFORMATION
  Report Type: 
  Country: None (occurrence: None)
  Receive Date: 20111003
  Receipt Date: 20110929
  Transmission Date: 20120403
  Serious: Yes (Death)
  Sender: FDA-Public Use
  Company Number: JP-B.I. PHARMACEUTICALS,INC./RIDGEFIELD-2011-BP-22886NB

PATIENT
  Age: 78 Year
  Sex: Female

DRUGS (9)
  1. LANIRAPID [Concomitant]
     Indication: MEDICAL DIET
     Dosage: 0.05 MG
     Route: 048
     Dates: start: 20110422, end: 20110926
  2. AMLODIPINE [Concomitant]
     Indication: HYPERTENSION
     Dosage: 5 MG
     Route: 048
     Dates: start: 20100501
  3. CIBENOL [Concomitant]
     Indication: CARDIOVERSION
     Dosage: 150 MG
     Route: 048
     Dates: start: 20110422, end: 20110926
  4. PRADAXA [Suspect]
     Indication: ATRIAL FIBRILLATION
     Dosage: 225 MG
     Route: 048
     Dates: start: 20110416, end: 20110926
  5. NEO-MERCAZOLE TAB [Concomitant]
     Dosage: 5 MG
     Route: 048
     Dates: start: 20060101
  6. TENORMIN [Concomitant]
     Indication: HYPERTENSION
     Dosage: 50 MG
     Route: 048
     Dates: start: 20060101
  7. NICARDIPINE HCL [Concomitant]
     Dosage: 8 MG
     Route: 048
     Dates: start: 20060101
  8. LIVALO [Concomitant]
     Indication: HYPERLIPIDAEMIA
     Dosage: 1 MG
     Route: 048
     Dates: start: 20090625, end: 20110926
  9. ASPIRIN [Concomitant]
     Indication: ATRIAL FIBRILLATION
     Dosage: 100 MG
     Route: 048
     Dates: start: 20090218

REACTIONS (1)
  - CEREBRAL HAEMORRHAGE [None]
